FAERS Safety Report 5412647-4 (Version None)
Quarter: 2007Q3

REPORT INFORMATION
  Report Type: 
  Country: None (occurrence: None)
  Receive Date: 20070813
  Receipt Date: 20070802
  Transmission Date: 20080115
  Serious: Yes (Other)
  Sender: FDA-Public Use
  Company Number: JP-ROCHE-490497

PATIENT
  Age: 7 Year
  Sex: Male
  Weight: 35 kg

DRUGS (2)
  1. TAMIFLU [Suspect]
     Dosage: DOSE FORM: DRY SYRUP.
     Route: 048
     Dates: start: 20070319, end: 20070319
  2. TAMIFLU [Suspect]
     Route: 048
     Dates: start: 20070320, end: 20070320

REACTIONS (1)
  - AGITATION [None]
